FAERS Safety Report 10489372 (Version 4)
Quarter: 2014Q4

REPORT INFORMATION
  Report Type: Spontaneous
  Country: FR (occurrence: FR)
  Receive Date: 20141002
  Receipt Date: 20141121
  Transmission Date: 20150528
  Serious: Yes (Life-Threatening, Hospitalization, Other)
  Sender: FDA-Public Use
  Company Number: FR-BAYER-2014-145464

PATIENT
  Age: 46 Year
  Sex: Female
  Weight: 75 kg

DRUGS (8)
  1. ULTRAVIST [Suspect]
     Active Substance: IOPROMIDE
     Indication: COMPUTERISED TOMOGRAM ABDOMEN
     Dosage: 125 ML, ONCE, INJECTION SPEED: 1.6 ML/S
     Route: 042
     Dates: start: 20140930, end: 20140930
  2. DAFALGAN [Concomitant]
     Active Substance: ACETAMINOPHEN
     Dosage: 500 MG, UNK
  3. ULTRAVIST [Suspect]
     Active Substance: IOPROMIDE
     Indication: ABDOMINAL PAIN
  4. LYSANXIA [Concomitant]
     Active Substance: PRAZEPAM
     Dosage: 10 MG, UNK
  5. BETADINE [ETHANOL,POVIDONE-IODINE] [Concomitant]
     Indication: INFECTION PROPHYLAXIS
     Route: 061
  6. TOPALGIC [TRAMADOL HYDROCHLORIDE] [Concomitant]
  7. IMOVANE [Concomitant]
     Active Substance: ZOPICLONE
     Dosage: 7.5 MG, UNK
  8. EFFEXOR [Concomitant]
     Active Substance: VENLAFAXINE HYDROCHLORIDE
     Dosage: 75 MG, UNK

REACTIONS (8)
  - Rib fracture [Not Recovered/Not Resolved]
  - Cardio-respiratory arrest [Recovered/Resolved with Sequelae]
  - Feeling hot [Recovered/Resolved]
  - Angioedema [None]
  - Seizure [Recovered/Resolved]
  - Malaise [Recovered/Resolved]
  - Anaphylactic shock [Recovered/Resolved]
  - Hypotension [Recovered/Resolved]

NARRATIVE: CASE EVENT DATE: 20140930
